FAERS Safety Report 21325448 (Version 1)
Quarter: 2022Q3

REPORT INFORMATION
  Report Type: Spontaneous
  Country: US (occurrence: US)
  Receive Date: 20220912
  Receipt Date: 20220912
  Transmission Date: 20221026
  Serious: No
  Sender: FDA-Public Use
  Company Number: US-SA-SAC20220909001680

PATIENT
  Age: 52 Year
  Sex: Male
  Weight: 97.52 kg

DRUGS (19)
  1. DUPIXENT [Suspect]
     Active Substance: DUPILUMAB
     Indication: Dermatitis atopic
     Dosage: 300 MG, QOW
     Route: 058
     Dates: start: 202006
  2. DUPIXENT [Suspect]
     Active Substance: DUPILUMAB
     Indication: Asthma
  3. AMITRIPTYLINE [Concomitant]
     Active Substance: AMITRIPTYLINE
  4. LISINOPRIL [Concomitant]
     Active Substance: LISINOPRIL
  5. PREDNISONE [Concomitant]
     Active Substance: PREDNISONE
  6. BENZONATATE [Concomitant]
     Active Substance: BENZONATATE
  7. EPIPEN [Concomitant]
     Active Substance: EPINEPHRINE
  8. TYLENOL [Concomitant]
     Active Substance: ACETAMINOPHEN
  9. MOTRIN IB [Concomitant]
     Active Substance: IBUPROFEN
  10. HYOSCYAMINE SULFATE [Concomitant]
     Active Substance: HYOSCYAMINE SULFATE
  11. DICYCLOMINE HYDROCHLORIDE [Concomitant]
     Active Substance: DICYCLOMINE HYDROCHLORIDE
  12. HYDROCHLOROTHIAZIDE [Concomitant]
     Active Substance: HYDROCHLOROTHIAZIDE
  13. SPIRIVA RESPIMAT [Concomitant]
     Active Substance: TIOTROPIUM BROMIDE
  14. QVAR REDIHALER [Concomitant]
     Active Substance: BECLOMETHASONE DIPROPIONATE
  15. PROAIR HFA [Concomitant]
     Active Substance: ALBUTEROL SULFATE
  16. BREO ELLIPTA [Concomitant]
     Active Substance: FLUTICASONE FUROATE\VILANTEROL TRIFENATATE
  17. SINGULAIR [Concomitant]
     Active Substance: MONTELUKAST SODIUM
  18. SIMVASTATIN [Concomitant]
     Active Substance: SIMVASTATIN
  19. DEPAKOTE [Concomitant]
     Active Substance: DIVALPROEX SODIUM

REACTIONS (2)
  - Joint injury [Unknown]
  - Knee operation [Unknown]

NARRATIVE: CASE EVENT DATE: 20210101
